FAERS Safety Report 5812645-2 (Version None)
Quarter: 2008Q3

REPORT INFORMATION
  Report Type: 
  Country: None (occurrence: None)
  Receive Date: 20080711
  Receipt Date: 20080707
  Transmission Date: 20090109
  Serious: Yes (Other)
  Sender: FDA-Public Use
  Company Number: 2008SP009205

PATIENT
  Age: 64 Year
  Sex: Male

DRUGS (6)
  1. CLARITIN [Suspect]
     Indication: RHINORRHOEA
     Dosage: 10 MG; ONCE
     Dates: start: 20080504, end: 20080504
  2. CLARITIN [Suspect]
     Indication: SNEEZING
     Dosage: 10 MG; ONCE
     Dates: start: 20080504, end: 20080504
  3. CLARITIN [Suspect]
     Indication: THROAT IRRITATION
     Dosage: 10 MG; ONCE
     Dates: start: 20080504, end: 20080504
  4. DILANTIN [Concomitant]
  5. TRAZODONE HCL [Concomitant]
  6. CLONAZEPAM [Concomitant]

REACTIONS (1)
  - CONVULSION [None]
